FAERS Safety Report 6548883-3 (Version None)
Quarter: 2010Q1

REPORT INFORMATION
  Report Type: 
  Country: None (occurrence: None)
  Receive Date: 20100125
  Receipt Date: 20100114
  Transmission Date: 20100710
  Serious: Yes (Hospitalization, Other)
  Sender: FDA-Public Use
  Company Number: US-BIOGENIDEC-2009BI007701

PATIENT
  Sex: Male
  Weight: 117 kg

DRUGS (1)
  1. TYSABRI [Suspect]
     Indication: MULTIPLE SCLEROSIS
     Route: 042
     Dates: start: 20071003

REACTIONS (12)
  - CHOLELITHIASIS [None]
  - DIAPHRAGM MUSCLE WEAKNESS [None]
  - EMPHYSEMA [None]
  - IMMUNE RECONSTITUTION SYNDROME [None]
  - LIVER DISORDER [None]
  - MULTIPLE SCLEROSIS RELAPSE [None]
  - PNEUMONIA [None]
  - PULMONARY OEDEMA [None]
  - SINUSITIS [None]
  - SKIN LESION [None]
  - SLEEP APNOEA SYNDROME [None]
  - SPLENOMEGALY [None]
